FAERS Safety Report 9302018 (Version 2)
Quarter: 2013Q2

REPORT INFORMATION
  Report Type: Spontaneous
  Country: US (occurrence: US)
  Receive Date: 20130521
  Receipt Date: 20130525
  Transmission Date: 20140414
  Serious: Yes (Other)
  Sender: FDA-Public Use
  Company Number: CHPA2013US008460

PATIENT
  Age: 57 Year
  Sex: Female

DRUGS (5)
  1. VOLTAREN GEL [Suspect]
     Indication: OSTEOARTHRITIS
     Dosage: 2 G, QID
     Route: 061
     Dates: start: 20130503, end: 20130517
  2. VOLTAREN GEL [Suspect]
     Dosage: UNK, UNK
     Route: 061
  3. ALLEGRA [Concomitant]
     Indication: HYPERSENSITIVITY
  4. LANTUS [Concomitant]
     Indication: DIABETES MELLITUS
  5. HUMALOG [Concomitant]
     Indication: DIABETES MELLITUS

REACTIONS (3)
  - Blood glucose increased [Recovering/Resolving]
  - Concomitant disease aggravated [Recovering/Resolving]
  - Underdose [Unknown]
